FAERS Safety Report 23660397 (Version 12)
Quarter: 2025Q4

REPORT INFORMATION
  Report Type: Report from Study
  Country: IN (occurrence: IN)
  Receive Date: 20240321
  Receipt Date: 20251229
  Transmission Date: 20260118
  Serious: Yes (Other)
  Sender: NOVARTIS
  Company Number: IN-002147023-NVSC2024IN058920

PATIENT
  Sex: Female

DRUGS (4)
  1. RIBOCICLIB [Suspect]
     Active Substance: RIBOCICLIB
     Indication: Breast cancer metastatic
     Dosage: 400 MG, QD (2 DOSAGE FORM, QD (200 MG) FOR 21 DAYS/ 28 DAYS)
     Route: 048
     Dates: start: 20230211
  2. RIBOCICLIB [Suspect]
     Active Substance: RIBOCICLIB
     Indication: Hormone receptor positive HER2 negative breast cancer
     Dosage: 400 MG, QD
     Route: 048
     Dates: start: 20231102
  3. RIBOCICLIB [Suspect]
     Active Substance: RIBOCICLIB
     Indication: Breast cancer
     Dosage: 400 MG, BID
     Route: 048
  4. RIBOCICLIB [Suspect]
     Active Substance: RIBOCICLIB
     Dosage: 400 MG, QD, FOR 21 DAYS /28 DAYS
     Route: 048

REACTIONS (16)
  - Hypokalaemia [Unknown]
  - Metastases to lung [Unknown]
  - Breast cancer recurrent [Unknown]
  - Malignant neoplasm progression [Unknown]
  - Adenocarcinoma gastric [Unknown]
  - Second primary malignancy [Unknown]
  - Pain [Unknown]
  - Arthralgia [Unknown]
  - Blood creatinine increased [Unknown]
  - Coronary artery dilatation [Unknown]
  - Cough [Unknown]
  - Hepatic lesion [Unknown]
  - Hypometabolism [Unknown]
  - Off label use [Unknown]
  - Laboratory test abnormal [Unknown]
  - Full blood count abnormal [Unknown]
